FAERS Safety Report 6581262-1 (Version None)
Quarter: 2010Q1

REPORT INFORMATION
  Report Type: 
  Country: None (occurrence: None)
  Receive Date: 20100203
  Receipt Date: 20100120
  Transmission Date: 20100710
  Serious: Yes (Hospitalization, Other)
  Sender: FDA-Public Use
  Company Number: 8054907

PATIENT
  Sex: Female
  Weight: 73.5 kg

DRUGS (14)
  1. CERTOLIZUMAB PEGOL (CERTOLIZUMAB PEGOL) [Suspect]
     Indication: RHEUMATOID ARTHRITIS
     Dosage: 400, 200  MG 1X/2 WEEKS, SUBCUTANEOUS
     Route: 058
     Dates: start: 20050825, end: 20060809
  2. CERTOLIZUMAB PEGOL (CERTOLIZUMAB PEGOL) [Suspect]
     Indication: RHEUMATOID ARTHRITIS
     Dosage: 400, 200  MG 1X/2 WEEKS, SUBCUTANEOUS
     Route: 058
     Dates: start: 20060823, end: 20071114
  3. CERTOLIZUMAB PEGOL (CERTOLIZUMAB PEGOL) [Suspect]
     Indication: RHEUMATOID ARTHRITIS
     Dosage: 400, 200  MG 1X/2 WEEKS, SUBCUTANEOUS
     Route: 058
     Dates: start: 20071128, end: 20091222
  4. METHOTREXATE [Concomitant]
  5. INDOMETACIN [Concomitant]
  6. CARVEDILOL [Concomitant]
  7. RENITEC [Concomitant]
  8. ASPIRIN [Concomitant]
  9. EUGLUCON [Concomitant]
  10. D..B.I. AP METFORMINA [Concomitant]
  11. IRUXOL [Concomitant]
  12. FOLIC ACID [Concomitant]
  13. MINOCYCLINE HCL [Concomitant]
  14. LEVOFLOXACIN [Concomitant]

REACTIONS (5)
  - ANAEMIA [None]
  - DIABETIC FOOT INFECTION [None]
  - ESCHERICHIA INFECTION [None]
  - HYPOGLYCAEMIA [None]
  - STAPHYLOCOCCAL INFECTION [None]
